FAERS Safety Report 9050494 (Version 1)
Quarter: 2013Q1

REPORT INFORMATION
  Report Type: Spontaneous
  Country: US (occurrence: US)
  Receive Date: 20130205
  Receipt Date: 20130205
  Transmission Date: 20140127
  Serious: No
  Sender: FDA-Public Use
  Company Number: US-TEVA-384393USA

PATIENT
  Age: 52 None
  Sex: Female
  Weight: 56.75 kg

DRUGS (4)
  1. QNASL [Suspect]
     Dosage: 80 MICROGRAM DAILY; 2 SPRAYS
  2. FLOVENT [Concomitant]
  3. SEIURE MEDICATIONS [Concomitant]
  4. VENTOLIN [Concomitant]

REACTIONS (2)
  - Medication error [Recovered/Resolved]
  - Lung disorder [Not Recovered/Not Resolved]
